FAERS Safety Report 5616306-4 (Version None)
Quarter: 2008Q1

REPORT INFORMATION
  Report Type: 
  Country: None (occurrence: None)
  Receive Date: 20080204
  Receipt Date: 20080118
  Transmission Date: 20080703
  Serious: Yes (Life-Threatening, Hospitalization, Other)
  Sender: FDA-Public Use
  Company Number: MC200800028

PATIENT
  Age: 82 Year
  Sex: Female
  Weight: 75 kg

DRUGS (11)
  1. ANGIOMAX [Suspect]
     Indication: PERCUTANEOUS CORONARY INTERVENTION
     Dosage: 11.3 ML BOLUS, IV BOLUS; 2 ML, TOTAL INFUSION, INTRAVENOUS
     Route: 040
     Dates: start: 20080110, end: 20080110
  2. ANGIOMAX [Suspect]
     Indication: PERCUTANEOUS CORONARY INTERVENTION
     Dosage: 11.3 ML BOLUS, IV BOLUS; 2 ML, TOTAL INFUSION, INTRAVENOUS
     Route: 040
     Dates: start: 20080110, end: 20080110
  3. ISOVUE-300 [Suspect]
     Dosage: 150 MG SINGLE INTRAVENOUS
     Route: 042
     Dates: start: 20080110, end: 20080110
  4. HEPARIN SODIUM W/SODIUM CHLORIDE (HEPARIN SODIUM, SODIUM CHLORIDE) [Concomitant]
  5. VERSED [Concomitant]
  6. FENTANYL [Concomitant]
  7. PLAVIX [Concomitant]
  8. ASPIRIN [Concomitant]
  9. ATENOLOL [Concomitant]
  10. LESCOL /01224501/ (FLUVASTATIN) [Concomitant]
  11. TYLENOL PM /01088101/ (DIPHENHYDRAMINE, PARACETAMOL) [Concomitant]

REACTIONS (9)
  - BLOOD PRESSURE INCREASED [None]
  - CARDIAC ARREST [None]
  - ELECTROCARDIOGRAM ST SEGMENT ELEVATION [None]
  - HYPERSENSITIVITY [None]
  - MEAN ARTERIAL PRESSURE INCREASED [None]
  - TACHYCARDIA [None]
  - TONGUE BITING [None]
  - TONGUE HAEMORRHAGE [None]
  - VENTRICULAR FIBRILLATION [None]
